FAERS Safety Report 8556128-8 (Version None)
Quarter: 2012Q3

REPORT INFORMATION
  Report Type: 
  Country: None (occurrence: None)
  Receive Date: 20120801
  Receipt Date: 20120723
  Transmission Date: 20120928
  Serious: Yes (Hospitalization)
  Sender: FDA-Public Use
  Company Number: US-SANOFI-AVENTIS-2012SA012736

PATIENT
  Age: 67 Year
  Sex: Female
  Weight: 84.54 kg

DRUGS (8)
  1. WARFARIN [Concomitant]
  2. LEVOTHYROXINE SODIUM [Concomitant]
     Indication: THYROID DISORDER
     Dates: start: 19990101
  3. APIDRA [Suspect]
     Dosage: 6 UNITS WITH BREAKFAST IN AM, 6 UNITS WITH LUNCH AND 6 UNITS WITH DINNER
     Route: 058
  4. RAMIPRIL [Concomitant]
     Indication: PROPHYLAXIS
     Dates: start: 20100101
  5. SOLOSTAR [Suspect]
  6. LANTUS [Suspect]
     Dosage: 24 U IN AM AND 28 U IN PMI
     Route: 058
     Dates: start: 20090101
  7. CRESTOR [Concomitant]
     Dates: start: 20090101
  8. LORAZEPAM [Concomitant]
     Indication: SLEEP DISORDER
     Dates: start: 20100101

REACTIONS (6)
  - LOWER LIMB FRACTURE [None]
  - PYELONEPHRITIS [None]
  - URETHRITIS [None]
  - BLOOD GLUCOSE FLUCTUATION [None]
  - PULMONARY EMBOLISM [None]
  - COAGULATION TIME PROLONGED [None]
